FAERS Safety Report 12095198 (Version 6)
Quarter: 2017Q3

REPORT INFORMATION
  Report Type: Spontaneous
  Country: US (occurrence: US)
  Receive Date: 20160219
  Receipt Date: 20170808
  Transmission Date: 20171127
  Serious: No
  Sender: FDA-Public Use
  Company Number: US-ELI_LILLY_AND_COMPANY-US201601008731

PATIENT
  Age: 68 Year
  Sex: Male

DRUGS (15)
  1. HUMALOG [Suspect]
     Active Substance: INSULIN LISPRO
     Indication: TYPE 2 DIABETES MELLITUS
     Dosage: 20 U, QD
     Route: 058
     Dates: start: 20160108
  2. HUMALOG [Suspect]
     Active Substance: INSULIN LISPRO
     Dosage: 48 U, QD
     Route: 058
  3. HUMALOG [Suspect]
     Active Substance: INSULIN LISPRO
     Dosage: 20 U, UNKNOWN
     Route: 058
  4. HUMALOG [Suspect]
     Active Substance: INSULIN LISPRO
     Dosage: 20 U, QD
     Route: 058
  5. HUMALOG [Suspect]
     Active Substance: INSULIN LISPRO
     Dosage: 48 U, QD
     Route: 058
     Dates: start: 201603
  6. METFORMIN [Suspect]
     Active Substance: METFORMIN HYDROCHLORIDE
     Indication: PRODUCT USED FOR UNKNOWN INDICATION
     Dosage: UNK UNK, UNKNOWN
     Route: 065
     Dates: start: 201601
  7. HUMALOG [Suspect]
     Active Substance: INSULIN LISPRO
     Dosage: 48 U, QD
     Route: 058
     Dates: start: 201603
  8. HUMALOG [Suspect]
     Active Substance: INSULIN LISPRO
     Dosage: 50 U, UNKNOWN
     Route: 058
  9. NOVOLOG [Suspect]
     Active Substance: INSULIN ASPART
     Indication: PRODUCT USED FOR UNKNOWN INDICATION
     Dosage: 17 U, UNKNOWN
     Route: 065
     Dates: start: 201602
  10. HUMALOG [Suspect]
     Active Substance: INSULIN LISPRO
     Dosage: 30 U, QD
     Route: 058
  11. HUMALOG [Suspect]
     Active Substance: INSULIN LISPRO
     Dosage: 38 U, UNKNOWN
     Route: 058
     Dates: start: 201602
  12. HUMALOG [Suspect]
     Active Substance: INSULIN LISPRO
     Dosage: 20 U, UNKNOWN
     Route: 058
     Dates: start: 201602
  13. HUMALOG [Suspect]
     Active Substance: INSULIN LISPRO
     Dosage: 10 U, UNKNOWN
     Route: 058
  14. HUMALOG [Suspect]
     Active Substance: INSULIN LISPRO
     Dosage: 46 U, UNKNOWN
     Route: 058
     Dates: start: 201602
  15. LEVEMIR [Concomitant]
     Active Substance: INSULIN DETEMIR
     Indication: PRODUCT USED FOR UNKNOWN INDICATION

REACTIONS (14)
  - Heart rate increased [Recovered/Resolved]
  - Blood glucose decreased [Recovered/Resolved]
  - Back pain [Unknown]
  - Pain [Unknown]
  - Blood glucose increased [Recovered/Resolved]
  - Hyperglycaemia [Recovered/Resolved]
  - Incorrect dose administered [Unknown]
  - Wrong technique in product usage process [Unknown]
  - Diarrhoea [Unknown]
  - Blood glucose increased [Recovered/Resolved]
  - Drug ineffective [Unknown]
  - Decreased appetite [Unknown]
  - Blood glucose decreased [Recovered/Resolved]
  - Drug ineffective [Not Recovered/Not Resolved]

NARRATIVE: CASE EVENT DATE: 20160108
